FAERS Safety Report 4677661-5 (Version None)
Quarter: 2005Q2

REPORT INFORMATION
  Report Type: 
  Country: None (occurrence: None)
  Receive Date: 20050531
  Receipt Date: 20050303
  Transmission Date: 20051028
  Serious: Yes (Hospitalization, Disabling, Other)
  Sender: FDA-Public Use
  Company Number: US-MERCK-0503USA00815

PATIENT
  Age: 61 Year
  Sex: Male
  Weight: 84 kg

DRUGS (13)
  1. NOVOLIN R [Concomitant]
     Route: 058
  2. NOVOLIN R [Concomitant]
     Route: 058
  3. NOVOLIN R [Concomitant]
     Route: 058
  4. LASIX [Concomitant]
     Route: 065
     Dates: start: 20020101
  5. LASIX [Concomitant]
     Route: 048
     Dates: start: 20020101
  6. POTASSIUM CHLORIDE [Concomitant]
     Route: 048
  7. VIOXX [Suspect]
     Indication: OSTEOARTHRITIS
     Route: 048
     Dates: start: 20010101, end: 20030725
  8. VIOXX [Suspect]
     Route: 048
     Dates: start: 20010101, end: 20030725
  9. NOVOLIN N [Concomitant]
     Route: 058
  10. NOVOLIN N [Concomitant]
     Route: 058
  11. PIROXICAM [Concomitant]
     Route: 048
  12. COUMADIN [Concomitant]
     Route: 048
  13. SODIUM CHLORIDE [Concomitant]
     Route: 048

REACTIONS (37)
  - ACUTE CORONARY SYNDROME [None]
  - ANXIETY [None]
  - CARDIAC FAILURE CONGESTIVE [None]
  - CARDIOMEGALY [None]
  - CEREBRAL ATROPHY [None]
  - CHEST DISCOMFORT [None]
  - CHEST PAIN [None]
  - CORONARY ARTERY DISEASE [None]
  - COUGH [None]
  - DECREASED APPETITE [None]
  - DYSPNOEA [None]
  - EMOTIONAL DISTRESS [None]
  - FLUID OVERLOAD [None]
  - GASTRITIS [None]
  - HAEMATOCHEZIA [None]
  - HALLUCINATION [None]
  - HEPATIC STEATOSIS [None]
  - HERNIA [None]
  - INSOMNIA [None]
  - ISCHAEMIC CARDIOMYOPATHY [None]
  - JOINT DISLOCATION [None]
  - LUNG DISORDER [None]
  - METABOLIC SYNDROME [None]
  - MITRAL VALVE INCOMPETENCE [None]
  - MUSCULOSKELETAL DISCOMFORT [None]
  - MYALGIA [None]
  - MYOCARDIAL INFARCTION [None]
  - OBESITY [None]
  - OEDEMA PERIPHERAL [None]
  - RENAL FAILURE [None]
  - RHEUMATOID ARTHRITIS [None]
  - RIB FRACTURE [None]
  - SLEEP APNOEA SYNDROME [None]
  - TENOSYNOVITIS [None]
  - UPPER GASTROINTESTINAL HAEMORRHAGE [None]
  - URINARY TRACT DISORDER [None]
  - WOUND INFECTION STAPHYLOCOCCAL [None]
